FAERS Safety Report 8302585-1 (Version None)
Quarter: 2012Q2

REPORT INFORMATION
  Report Type: 
  Country: None (occurrence: None)
  Receive Date: 20120420
  Receipt Date: 20120411
  Transmission Date: 20120825
  Serious: Yes (Hospitalization)
  Sender: FDA-Public Use
  Company Number: CO-AMGEN-COLSP2011067173

PATIENT
  Age: 70 Year
  Sex: Female

DRUGS (11)
  1. SINTROM [Concomitant]
     Indication: CARDIAC DISORDER
     Dosage: 1 CAPSULE OF 0.25 MG DAILY ORALLY
     Route: 048
     Dates: start: 20100601
  2. VITAMIN D [Concomitant]
     Dosage: UNK
  3. METHOTREXATE SODIUM [Concomitant]
     Indication: OSTEOPOROSIS
  4. FLUOXETINE [Concomitant]
     Indication: DEPRESSION
     Dosage: 1 CAPSULE IN FAST EVERY DAYS OF 20 MG ORALLY
     Route: 048
     Dates: start: 20100601
  5. LATANOPROST [Concomitant]
     Dosage: 2.5 ML, UNK
  6. ENBREL [Suspect]
     Indication: RHEUMATOID ARTHRITIS
     Dosage: 50 MG, WEEKLY
     Route: 058
     Dates: start: 20111213, end: 20120314
  7. PREDNISOLONE [Concomitant]
     Indication: RHEUMATOID ARTHRITIS
     Dosage: 7.5 MG (5 MG 1 TABLET AND A HALF), 1X/DAY
  8. CLONAZEPAM [Concomitant]
     Indication: NIGHTMARE
     Dosage: 1 CAPSULE OF 25 MG DAILY ORALLY
     Route: 048
     Dates: start: 20100601
  9. METHOTREXATE SODIUM [Concomitant]
     Indication: RHEUMATOID ARTHRITIS
     Dosage: 12.5 MG, WEEKLY
  10. FOLIC ACID [Concomitant]
     Indication: RHEUMATOID ARTHRITIS
     Dosage: 1 MG, 1X/DAY
  11. CALCIUM CARBONATE/COLECALCIFEROL [Concomitant]
     Indication: OSTEOPOROSIS
     Dosage: 2 TABLETS DAILY

REACTIONS (10)
  - ARTHRALGIA [None]
  - HEADACHE [None]
  - OSTEOLYSIS [None]
  - INSOMNIA [None]
  - OEDEMA PERIPHERAL [None]
  - SWELLING FACE [None]
  - FACIAL PAIN [None]
  - BACK PAIN [None]
  - STRESS [None]
  - PELVIC PAIN [None]
